FAERS Safety Report 19999036 (Version 1)
Quarter: 2021Q4

REPORT INFORMATION
  Report Type: Spontaneous
  Country: US (occurrence: US)
  Receive Date: 20211026
  Receipt Date: 20211026
  Transmission Date: 20220303
  Serious: Yes (Other)
  Sender: FDA-Public Use
  Company Number: US-PFIZER INC-202101381274

PATIENT
  Age: 72 Year
  Sex: Male

DRUGS (9)
  1. HEPARIN SODIUM [Suspect]
     Active Substance: HEPARIN SODIUM
     Indication: Thrombosis prophylaxis
     Dosage: UNK
  2. DECADRON [Concomitant]
     Active Substance: DEXAMETHASONE
     Dosage: UNK
  3. REMDESIVIR [Concomitant]
     Active Substance: REMDESIVIR
     Dosage: UNK
  4. AZITHROMYCIN ANHYDROUS [Concomitant]
     Active Substance: AZITHROMYCIN ANHYDROUS
     Dosage: UNK
  5. CEFTRIAXONE [Concomitant]
     Active Substance: CEFTRIAXONE
     Dosage: UNK
  6. LOVENOX [Concomitant]
     Active Substance: ENOXAPARIN SODIUM
     Dosage: UNK
  7. ZINC [Concomitant]
     Active Substance: ZINC
     Dosage: UNK
  8. VITAMIN C [Concomitant]
     Active Substance: ASCORBIC ACID
     Dosage: UNK
  9. ARGATROBAN [Concomitant]
     Active Substance: ARGATROBAN

REACTIONS (3)
  - Renal tubular acidosis [Unknown]
  - Hyperkalaemia [Recovered/Resolved]
  - Hypoaldosteronism [Unknown]
